FAERS Safety Report 7539523-5 (Version None)
Quarter: 2011Q2

REPORT INFORMATION
  Report Type: 
  Country: None (occurrence: None)
  Receive Date: 20110609
  Receipt Date: 20110609
  Transmission Date: 20111010
  Serious: Yes (Hospitalization)
  Sender: FDA-Public Use
  Company Number: None

PATIENT
  Sex: Female
  Weight: 67.3 kg

DRUGS (9)
  1. HYDROCODONE [Concomitant]
  2. NORVASC [Concomitant]
  3. LISINOPRIL AND HYDROCHLOROTHIAZIDE [Concomitant]
  4. TEMODAR [Suspect]
     Indication: GLIOBLASTOMA MULTIFORME
     Dosage: TEMODAR 140MG DAILY PO
     Route: 048
     Dates: start: 20110425
  5. CARVEDILOL [Concomitant]
  6. LORAZEPAM [Concomitant]
  7. DEXAMETHASONE [Concomitant]
  8. FLEXERIL [Concomitant]
  9. KEPPRA [Concomitant]

REACTIONS (9)
  - DECREASED APPETITE [None]
  - PNEUMONIA [None]
  - PANCYTOPENIA [None]
  - NAUSEA [None]
  - HYPOKALAEMIA [None]
  - HYPONATRAEMIA [None]
  - ASTHENIA [None]
  - ANAEMIA [None]
  - HYPOTENSION [None]
